FAERS Safety Report 5431585-4 (Version None)
Quarter: 2007Q3

REPORT INFORMATION
  Report Type: 
  Country: None (occurrence: None)
  Receive Date: 20070830
  Receipt Date: 20070820
  Transmission Date: 20080115
  Serious: Yes (Death)
  Sender: FDA-Public Use
  Company Number: JP-BRISTOL-MYERS SQUIBB COMPANY-13811393

PATIENT
  Age: 59 Year
  Sex: Male

DRUGS (9)
  1. ARIPIPRAZOLE [Suspect]
     Indication: SCHIZOPHRENIA
     Dosage: 30MG 23-MAR TO 05-APR; 18MG 06-APR TO 12-APR
     Route: 048
     Dates: start: 20070316, end: 20070322
  2. RISPERIDONE [Suspect]
     Dosage: 6MG 13-APR TO 19-APR; 9MG 20APR-24APR
     Route: 048
     Dates: start: 20070404, end: 20070424
  3. LEVOMEPROMAZINE MALEATE [Suspect]
     Route: 048
     Dates: start: 20070404, end: 20070430
  4. DILAZEP HCL [Concomitant]
     Dosage: 150MG-UNKNOWN-15MAR,23MAR-29MAR2007-50MG
     Route: 048
     Dates: start: 20070316, end: 20070322
  5. BIPERIDEN HYDROCHLORIDE TAB [Concomitant]
     Dosage: 23MAR-05APR2007-2MG,06APR-12APR-1MG
     Route: 048
     Dates: start: 20070316, end: 20070422
  6. CHLORPROMAZINE HCL [Concomitant]
     Dosage: 06APR-?APR07 150 MG,13APR07-20APR07 50 MG.
     Route: 048
     Dates: end: 20070405
  7. NITRAZEPAM [Concomitant]
     Dosage: 13APR-25MAY.20MG
     Route: 048
     Dates: end: 20070412
  8. HALOPERIDOL [Concomitant]
     Dosage: UNKNOWN-15/3/07 7.5 MG
     Route: 048
     Dates: start: 20070316, end: 20070501
  9. SENNOSIDE [Concomitant]
     Route: 048
     Dates: end: 20070525

REACTIONS (4)
  - ANAEMIA [None]
  - HEPATIC FUNCTION ABNORMAL [None]
  - PRURIGO [None]
  - WEIGHT DECREASED [None]
